FAERS Safety Report 7363760-6 (Version None)
Quarter: 2011Q1

REPORT INFORMATION
  Report Type: 
  Country: None (occurrence: None)
  Receive Date: 20110321
  Receipt Date: 20110311
  Transmission Date: 20110831
  Serious: Yes (Hospitalization)
  Sender: FDA-Public Use
  Company Number: FR-B.I. PHARMACEUTICALS,INC./RIDGEFIELD-2011-FF-00245FF

PATIENT
  Sex: Female

DRUGS (12)
  1. KEFANDOL [Suspect]
     Dosage: 3000 MG
     Dates: start: 20110117, end: 20110117
  2. ACUPAN [Concomitant]
     Dates: start: 20110121, end: 20110122
  3. LYRICA [Suspect]
     Route: 048
     Dates: start: 20110117, end: 20110127
  4. DAFALGAN [Concomitant]
     Route: 048
     Dates: start: 20110121, end: 20110122
  5. PRADAXA [Suspect]
     Indication: KNEE ARTHROPLASTY
     Route: 048
     Dates: start: 20110117, end: 20110127
  6. ZANIDIP [Concomitant]
     Dosage: 1 ANZ
     Route: 048
  7. AMLODIPINE BESYLATE [Concomitant]
     Dates: start: 20110118, end: 20110118
  8. DAFALGAN [Concomitant]
     Route: 048
     Dates: start: 20110118, end: 20110118
  9. CELEBREX [Suspect]
     Route: 048
     Dates: start: 20110117, end: 20110127
  10. ACUPAN [Concomitant]
     Dates: start: 20110118, end: 20110118
  11. KARDEGIC [Concomitant]
     Dosage: 75 MG
     Route: 048
  12. AMLODIPINE BESYLATE [Concomitant]
     Dates: start: 20110121, end: 20110122

REACTIONS (3)
  - LIVER INJURY [None]
  - RASH MACULO-PAPULAR [None]
  - INFLAMMATION [None]
